FAERS Safety Report 6208628-3 (Version None)
Quarter: 2009Q2

REPORT INFORMATION
  Report Type: 
  Country: None (occurrence: None)
  Receive Date: 20090522
  Receipt Date: 20090305
  Transmission Date: 20091009
  Serious: No
  Sender: FDA-Public Use
  Company Number: 8043732

PATIENT
  Age: 46 Year
  Sex: Female
  Weight: 96.3 kg

DRUGS (5)
  1. CIMZIA [Suspect]
     Indication: CROHN'S DISEASE
     Dosage: 400 MG SC
     Route: 058
     Dates: start: 20081101
  2. LIALDA [Concomitant]
  3. CELEBREX [Concomitant]
  4. CYMBALTA [Concomitant]
  5. VERAPAMIL [Concomitant]

REACTIONS (1)
  - HOT FLUSH [None]
